FAERS Safety Report 8025304-5 (Version None)
Quarter: 2012Q1

REPORT INFORMATION
  Report Type: 
  Country: None (occurrence: None)
  Receive Date: 20120105
  Receipt Date: 20111228
  Transmission Date: 20120608
  Serious: Yes (Other)
  Sender: FDA-Public Use
  Company Number: CA-ABBOTT-11P-028-0883498-00

PATIENT
  Sex: Male
  Weight: 76.272 kg

DRUGS (8)
  1. KALETRA [Suspect]
     Indication: ANTIRETROVIRAL THERAPY
     Dosage: 400/50MG
     Route: 048
     Dates: start: 20010101
  2. TEVA ALLODIPINE [Concomitant]
     Indication: PRODUCT USED FOR UNKNOWN INDICATION
     Route: 048
  3. CRESTOR [Concomitant]
     Indication: BLOOD CHOLESTEROL
     Route: 048
  4. MAVIK [Concomitant]
     Indication: HYPERTENSION
     Route: 048
  5. PLAVIX [Concomitant]
     Indication: PRODUCT USED FOR UNKNOWN INDICATION
     Route: 048
  6. ASPIRIN [Concomitant]
     Indication: PRODUCT USED FOR UNKNOWN INDICATION
     Route: 048
  7. MYLAN-CYCLOBENZAPRINE [Concomitant]
     Indication: PRODUCT USED FOR UNKNOWN INDICATION
     Route: 048
  8. LYRICA [Concomitant]
     Indication: PRODUCT USED FOR UNKNOWN INDICATION
     Route: 048

REACTIONS (13)
  - CORONARY ARTERY OCCLUSION [None]
  - DISLOCATION OF VERTEBRA [None]
  - CHEST PAIN [None]
  - ARTHROPATHY [None]
  - FACIAL BONES FRACTURE [None]
  - OSTEOSCLEROSIS [None]
  - WALKING AID USER [None]
  - RETINAL DETACHMENT [None]
  - HYPERCHOLESTEROLAEMIA [None]
  - INJURY [None]
  - ROAD TRAFFIC ACCIDENT [None]
  - HYPOAESTHESIA [None]
  - INTERVERTEBRAL DISC PROTRUSION [None]
